FAERS Safety Report 10024150 (Version 1)
Quarter: 2014Q1

REPORT INFORMATION
  Report Type: Spontaneous
  Country: US (occurrence: US)
  Receive Date: 20140320
  Receipt Date: 20140320
  Transmission Date: 20141002
  Serious: No
  Sender: FDA-Public Use
  Company Number: US-PFIZER INC-2014076621

PATIENT
  Age: 66 Year
  Sex: Female

DRUGS (5)
  1. BENZYLPENICILLIN POTASSIUM [Suspect]
     Dosage: UNK
  2. PENICILLIN-V [Suspect]
     Dosage: UNK
  3. PANTOPRAZOLE [Concomitant]
     Dosage: 40 MG, UNK
  4. SIMVASTATIN [Concomitant]
     Dosage: 20 MG, UNK
  5. VIAGRA [Concomitant]
     Dosage: 50 MG, UNK

REACTIONS (1)
  - Drug hypersensitivity [Unknown]
